FAERS Safety Report 8177705-2 (Version None)
Quarter: 2012Q1

REPORT INFORMATION
  Report Type: 
  Country: None (occurrence: None)
  Receive Date: 20120301
  Receipt Date: 20120227
  Transmission Date: 20120608
  Serious: Yes (Death)
  Sender: FDA-Public Use
  Company Number: PHHY2011JP87767

PATIENT
  Sex: Male

DRUGS (2)
  1. TASIGNA [Suspect]
     Indication: CHRONIC MYELOID LEUKAEMIA
     Dosage: 800 MG DAILY
     Route: 048
     Dates: start: 20100604, end: 20100606
  2. AMLODIPINE BESYLATE [Concomitant]
     Indication: HYPERTENSION
     Dosage: 2.5 MG, UNK
     Route: 048
     Dates: end: 20100609

REACTIONS (6)
  - CYANOSIS [None]
  - PYREXIA [None]
  - INTERSTITIAL LUNG DISEASE [None]
  - DYSPNOEA [None]
  - FATIGUE [None]
  - MALAISE [None]
